FAERS Safety Report 5197498-0 (Version None)
Quarter: 2007Q1

REPORT INFORMATION
  Report Type: 
  Country: None (occurrence: None)
  Receive Date: 20070103
  Receipt Date: 20061227
  Transmission Date: 20070707
  Serious: Yes (Other)
  Sender: FDA-Public Use
  Company Number: US-SHR-US-2006-012198

PATIENT
  Age: 31 Year
  Sex: Female
  Weight: 83 kg

DRUGS (8)
  1. MIRENA [Suspect]
     Indication: CONTRACEPTION
     Dosage: 20 A?G/DAY, CONT
     Route: 015
     Dates: start: 20040101
  2. GINKGO BILOBA [Concomitant]
  3. VALERIAN EXTRACT [Concomitant]
  4. TURMERIC [Concomitant]
  5. COQ10 [Concomitant]
  6. L-GLUTAMINIC ACID [Concomitant]
  7. ECHINACEA EXTRACT [Concomitant]
  8. MELATONIN [Concomitant]

REACTIONS (1)
  - CONVULSION [None]
